FAERS Safety Report 5456449-1 (Version None)
Quarter: 2007Q3

REPORT INFORMATION
  Report Type: 
  Country: None (occurrence: None)
  Receive Date: 20070918
  Receipt Date: 20070910
  Transmission Date: 20080115
  Serious: No
  Sender: FDA-Public Use
  Company Number: CA-ELI_LILLY_AND_COMPANY-CA200707006527

PATIENT
  Age: 12 Year
  Sex: Female

DRUGS (3)
  1. NOVORAPID [Concomitant]
  2. LEVEMIR [Concomitant]
  3. GLUCAGON [Suspect]
     Indication: HYPOGLYCAEMIA
     Route: 058

REACTIONS (2)
  - INCORRECT DOSE ADMINISTERED [None]
  - PHARMACEUTICAL PRODUCT COMPLAINT [None]
